FAERS Safety Report 5530168-5 (Version None)
Quarter: 2007Q4

REPORT INFORMATION
  Report Type: 
  Country: None (occurrence: None)
  Receive Date: 20071128
  Receipt Date: 20071128
  Transmission Date: 20080405
  Serious: Yes (Life-Threatening, Other)
  Sender: FDA-Public Use
  Company Number: None

PATIENT
  Sex: Female
  Weight: 83.9154 kg

DRUGS (2)
  1. LYRICA [Suspect]
     Indication: BACK PAIN
     Dosage: 30 MG @1800 PO
     Route: 048
     Dates: start: 20070919, end: 20071109
  2. LYRICA [Suspect]
     Indication: FIBROMYALGIA
     Dosage: 30 MG @1800 PO
     Route: 048
     Dates: start: 20070919, end: 20071109

REACTIONS (11)
  - ABDOMINAL DISTENSION [None]
  - ANGIOEDEMA [None]
  - BLOOD PRESSURE INCREASED [None]
  - CHOKING [None]
  - DYSPNOEA [None]
  - OEDEMA PERIPHERAL [None]
  - OXYGEN SATURATION DECREASED [None]
  - PSYCHOMOTOR HYPERACTIVITY [None]
  - RESTRICTIVE PULMONARY DISEASE [None]
  - SLEEP DISORDER [None]
  - WEIGHT INCREASED [None]
